FAERS Safety Report 8806648 (Version 2)
Quarter: 2013Q1

REPORT INFORMATION
  Report Type: Spontaneous
  Country: US (occurrence: US)
  Receive Date: 20120925
  Receipt Date: 20130113
  Transmission Date: 20140127
  Serious: No
  Sender: FDA-Public Use
  Company Number: US-009507513-1209USA006122

PATIENT
  Age: 24 None
  Sex: Female
  Weight: 67.57 kg

DRUGS (1)
  1. IMPLANON [Suspect]
     Indication: CONTRACEPTION
     Dosage: 1 DF, UNK
     Route: 059
     Dates: start: 20120130

REACTIONS (2)
  - Metrorrhagia [Unknown]
  - Weight decreased [Unknown]
